FAERS Safety Report 7421687-5 (Version None)
Quarter: 2011Q2

REPORT INFORMATION
  Report Type: 
  Country: None (occurrence: None)
  Receive Date: 20110418
  Receipt Date: 20110406
  Transmission Date: 20111010
  Serious: Yes (Hospitalization)
  Sender: FDA-Public Use
  Company Number: US-PFIZER INC-2011016620

PATIENT
  Age: 61 Year
  Sex: Female
  Weight: 62 kg

DRUGS (2)
  1. LOPRESSOR [Concomitant]
  2. SUNITINIB MALATE [Suspect]
     Indication: UTERINE LEIOMYOSARCOMA
     Dosage: 50 MG, 1X/DAY, 4 WEEKS ON/2 WEEKS OFF
     Route: 048
     Dates: start: 20070319, end: 20070710

REACTIONS (2)
  - MYELODYSPLASTIC SYNDROME [None]
  - NEOPLASM MALIGNANT [None]
